FAERS Safety Report 9659634 (Version 2)
Quarter: 2014Q1

REPORT INFORMATION
  Report Type: Report from Study
  Country: CA (occurrence: CA)
  Receive Date: 20131031
  Receipt Date: 20140203
  Transmission Date: 20141002
  Serious: Yes (Other)
  Sender: FDA-Public Use
  Company Number: CA-JNJFOC-20131017143

PATIENT
  Age: 29 Year
  Sex: Female
  Weight: 107 kg

DRUGS (4)
  1. REMICADE [Suspect]
     Indication: COLITIS ULCERATIVE
     Route: 042
     Dates: start: 201212
  2. REMICADE [Suspect]
     Indication: COLITIS ULCERATIVE
     Route: 042
     Dates: start: 201301, end: 201310
  3. MEZAVANT [Concomitant]
     Route: 065
  4. IRON SUPPLEMENTS [Concomitant]
     Route: 065

REACTIONS (1)
  - Colectomy [Unknown]
